FAERS Safety Report 4860958-3 (Version None)
Quarter: 2005Q4

REPORT INFORMATION
  Report Type: 
  Country: None (occurrence: None)
  Receive Date: 20051220
  Receipt Date: 20051209
  Transmission Date: 20060501
  Serious: Yes (Other)
  Sender: FDA-Public Use
  Company Number: CA-BRISTOL-MYERS SQUIBB COMPANY-13217872

PATIENT
  Age: 78 Year
  Sex: Male

DRUGS (13)
  1. TEQUIN [Suspect]
     Route: 042
  2. ASPIRIN [Concomitant]
  3. ATROVENT [Concomitant]
  4. CARBAMAZEPINE [Concomitant]
  5. DOMPERIDONE [Concomitant]
  6. FLAGYL [Concomitant]
  7. HALOPERIDOL [Concomitant]
  8. HEPARIN [Concomitant]
  9. HUMULIN R [Concomitant]
  10. LEVOFLOXACIN [Concomitant]
     Route: 042
  11. PLAVIX [Concomitant]
  12. RANITIDINE [Concomitant]
  13. VENTOLIN [Concomitant]

REACTIONS (1)
  - HYPERGLYCAEMIA [None]
